FAERS Safety Report 5713923-8 (Version None)
Quarter: 2008Q2

REPORT INFORMATION
  Report Type: 
  Country: None (occurrence: None)
  Receive Date: 20080422
  Receipt Date: 20080422
  Transmission Date: 20081010
  Serious: Yes (Hospitalization)
  Sender: FDA-Public Use
  Company Number: None

PATIENT
  Age: 59 Year
  Sex: Male
  Weight: 93.98 kg

DRUGS (1)
  1. WARFARIN SODIUM [Suspect]
     Dosage: 18 MG QWEEK PO
     Route: 048
     Dates: start: 20040702

REACTIONS (14)
  - ASTHENIA [None]
  - BARRETT'S OESOPHAGUS [None]
  - DISTURBANCE IN ATTENTION [None]
  - DIZZINESS [None]
  - FALL [None]
  - FATIGUE [None]
  - GASTROINTESTINAL HAEMORRHAGE [None]
  - HEAD INJURY [None]
  - LUNG ADENOCARCINOMA STAGE IV [None]
  - LYMPHADENOPATHY [None]
  - METASTASES TO BONE [None]
  - METASTASES TO LIVER [None]
  - METASTASES TO LUNG [None]
  - METASTASES TO SPINE [None]
